FAERS Safety Report 13390009 (Version 1)
Quarter: 2017Q1

REPORT INFORMATION
  Report Type: Spontaneous
  Country: US (occurrence: US)
  Receive Date: 20170330
  Receipt Date: 20170330
  Transmission Date: 20170429
  Serious: No
  Sender: FDA-Public Use
  Company Number: None

PATIENT
  Age: 35 Year
  Sex: Male
  Weight: 70 kg

DRUGS (2)
  1. SODIUM DICLOFENAC [Suspect]
     Active Substance: DICLOFENAC SODIUM
     Indication: MYALGIA
     Route: 002
  2. SODIUM DICLOFENAC [Suspect]
     Active Substance: DICLOFENAC SODIUM
     Indication: STRESS
     Route: 002

REACTIONS (3)
  - Papule [None]
  - Rash [None]
  - Penis disorder [None]

NARRATIVE: CASE EVENT DATE: 20170329
